FAERS Safety Report 9626472 (Version 3)
Quarter: 2013Q4

REPORT INFORMATION
  Report Type: Spontaneous
  Country: AU (occurrence: AU)
  Receive Date: 20131016
  Receipt Date: 20131028
  Transmission Date: 20140711
  Serious: Yes (Death, Life-Threatening, Other)
  Sender: FDA-Public Use
  Company Number: AU-PFIZER INC-HQWYE481916NOV04

PATIENT
  Age: 69 Year
  Sex: Female

DRUGS (6)
  1. AMIODARONE HCL [Suspect]
     Indication: ATRIAL FIBRILLATION
     Dosage: 200 MG, DAILY
     Route: 048
     Dates: start: 20040301, end: 20040510
  2. OMEPRAZOLE [Suspect]
     Indication: OESOPHAGEAL DISORDER
     Dosage: 20 MG, DAILY
     Route: 048
     Dates: end: 20040510
  3. VALPROATE SODIUM [Suspect]
     Indication: EPILEPSY
     Dosage: 1. G, 1X/DAY
     Route: 048
     Dates: start: 20040229, end: 20040510
  4. WARFARIN [Suspect]
     Indication: ATRIAL FIBRILLATION
     Dosage: 1 MG, DAILY
     Route: 048
     Dates: start: 20040325, end: 20040510
  5. NEO MERCAZOLE [Suspect]
     Indication: HYPERTHYROIDISM
     Dosage: 15 MG, DAILY
     Route: 048
     Dates: start: 20040301, end: 20040510
  6. DILANTIN [Suspect]
     Indication: EPILEPSY
     Dosage: 300 MG, DAILY
     Route: 065
     Dates: start: 20040301, end: 20040510

REACTIONS (10)
  - Hepatic failure [Fatal]
  - Coma hepatic [Fatal]
  - Hepatorenal syndrome [Fatal]
  - Cardiomegaly [Fatal]
  - Dyspnoea exertional [Fatal]
  - Hypotension [Fatal]
  - Hyperthyroidism [Fatal]
  - Blindness unilateral [Fatal]
  - Depressed level of consciousness [Fatal]
  - Exophthalmos [Fatal]
